FAERS Safety Report 12780377 (Version 1)
Quarter: 2016Q3

REPORT INFORMATION
  Report Type: Spontaneous
  Country: US (occurrence: US)
  Receive Date: 20160926
  Receipt Date: 20160926
  Transmission Date: 20161109
  Serious: Yes (Other)
  Sender: FDA-Public Use
  Company Number: None

PATIENT
  Age: 33 Year
  Sex: Female

DRUGS (1)
  1. HYDROXYCHLOROQUINE 200MG [Suspect]
     Active Substance: HYDROXYCHLOROQUINE
     Indication: SJOGREN^S SYNDROME
     Route: 048
     Dates: start: 20160721, end: 20160906

REACTIONS (6)
  - Product substitution issue [None]
  - Fatigue [None]
  - Arthralgia [None]
  - Dry eye [None]
  - Dry mouth [None]
  - Sjogren^s syndrome [None]

NARRATIVE: CASE EVENT DATE: 20160721
